FAERS Safety Report 17743531 (Version 2)
Quarter: 2020Q2

REPORT INFORMATION
  Report Type: Spontaneous
  Country: AU (occurrence: AU)
  Receive Date: 20200504
  Receipt Date: 20200508
  Transmission Date: 20200714
  Serious: Yes (Death, Other)
  Sender: FDA-Public Use
  Company Number: AU-MYLANLABS-2020M1043666

PATIENT
  Sex: Male

DRUGS (1)
  1. CLOZARIL [Suspect]
     Active Substance: CLOZAPINE
     Indication: SCHIZOPHRENIA
     Dosage: 200 MILLIGRAM, QD
     Route: 048
     Dates: start: 19990708

REACTIONS (2)
  - Death [Fatal]
  - Brain neoplasm [Unknown]
